FAERS Safety Report 4444978-9 (Version None)
Quarter: 2004Q3

REPORT INFORMATION
  Report Type: 
  Country: None (occurrence: None)
  Receive Date: 20040907
  Receipt Date: 20040831
  Transmission Date: 20050211
  Serious: Yes (Death)
  Sender: FDA-Public Use
  Company Number: 2004SE04890

PATIENT
  Age: 36 Year
  Sex: Male

DRUGS (1)
  1. BLOPRESS [Suspect]
     Indication: HYPERTENSION
     Dosage: 4 MG BID PO
     Route: 048
     Dates: start: 20040801, end: 20040825

REACTIONS (1)
  - SUDDEN DEATH [None]
